FAERS Safety Report 7289612-8 (Version None)
Quarter: 2011Q1

REPORT INFORMATION
  Report Type: 
  Country: None (occurrence: None)
  Receive Date: 20110214
  Receipt Date: 20110201
  Transmission Date: 20110831
  Serious: Yes (Hospitalization)
  Sender: FDA-Public Use
  Company Number: US-BIOGENIDEC-2007BI024261

PATIENT
  Age: 42 Year
  Sex: Female
  Weight: 63 kg

DRUGS (9)
  1. TYSABRI [Suspect]
     Indication: MULTIPLE SCLEROSIS
     Route: 042
     Dates: start: 20070801, end: 20070926
  2. NEOSPORIN [Concomitant]
     Indication: INFECTION PROPHYLAXIS
  3. SODIUM CHLORIDE [Concomitant]
     Indication: INFECTION PROPHYLAXIS
  4. LACTULOSE [Concomitant]
     Indication: CONSTIPATION PROPHYLAXIS
  5. DETROL [Concomitant]
     Indication: NEUROGENIC BLADDER
  6. DETROL [Concomitant]
     Indication: URINARY INCONTINENCE
  7. POTASSIUM [Concomitant]
     Indication: BLOOD POTASSIUM DECREASED
  8. TYSABRI [Suspect]
     Route: 042
     Dates: start: 20071122, end: 20081020
  9. ESTROGENIC SUBSTANCE [Concomitant]
     Indication: HORMONE LEVEL ABNORMAL
     Route: 048
     Dates: start: 19880101, end: 20090101

REACTIONS (19)
  - DRUG INEFFECTIVE [None]
  - ANKLE FRACTURE [None]
  - JOINT INJURY [None]
  - TREMOR [None]
  - MUSCULOSKELETAL STIFFNESS [None]
  - OSTEOPOROSIS [None]
  - BACK PAIN [None]
  - ALOPECIA [None]
  - DEVICE LEAKAGE [None]
  - JOINT STIFFNESS [None]
  - DYSGRAPHIA [None]
  - CYSTITIS [None]
  - MOBILITY DECREASED [None]
  - FALL [None]
  - OEDEMA PERIPHERAL [None]
  - COORDINATION ABNORMAL [None]
  - MULTIPLE FRACTURES [None]
  - ARTHRALGIA [None]
  - FEELING ABNORMAL [None]
